FAERS Safety Report 25047555 (Version 1)
Quarter: 2025Q1

REPORT INFORMATION
  Report Type: Spontaneous
  Country: US (occurrence: US)
  Receive Date: 20250306
  Receipt Date: 20250306
  Transmission Date: 20250409
  Serious: No
  Sender: PFIZER
  Company Number: US-PFIZER INC-202500049110

PATIENT
  Sex: Male

DRUGS (4)
  1. BRAFTOVI [Suspect]
     Active Substance: ENCORAFENIB
     Indication: Brain neoplasm
     Dates: start: 202412, end: 202412
  2. BRAFTOVI [Suspect]
     Active Substance: ENCORAFENIB
     Indication: Noninfective encephalitis
  3. MEKTOVI [Suspect]
     Active Substance: BINIMETINIB
     Indication: Brain neoplasm
     Dates: start: 202412
  4. MEKTOVI [Suspect]
     Active Substance: BINIMETINIB
     Indication: Noninfective encephalitis

REACTIONS (4)
  - Fluid retention [Unknown]
  - Weight increased [Unknown]
  - Cardiac disorder [Unknown]
  - Off label use [Unknown]
